FAERS Safety Report 24258934 (Version 1)
Quarter: 2024Q3

REPORT INFORMATION
  Report Type: Spontaneous
  Country: CN (occurrence: CN)
  Receive Date: 20240828
  Receipt Date: 20240828
  Transmission Date: 20241016
  Serious: Yes (Hospitalization)
  Sender: PFIZER
  Company Number: CN-PFIZER INC-PV202400110619

PATIENT
  Age: 54 Year
  Sex: Female
  Weight: 65 kg

DRUGS (2)
  1. MEDROL [Suspect]
     Active Substance: METHYLPREDNISOLONE
     Indication: Connective tissue disorder
     Dosage: 24 MG, 1X/DAY
     Route: 048
     Dates: start: 20201206, end: 20210112
  2. MYCOPHENOLATE MOFETIL [Suspect]
     Active Substance: MYCOPHENOLATE MOFETIL
     Indication: Connective tissue disorder
     Dosage: 0.5 G, 2X/DAY
     Route: 048
     Dates: start: 20201206, end: 20210112

REACTIONS (3)
  - Diabetes mellitus [Recovering/Resolving]
  - Asthenia [Unknown]
  - Oedema peripheral [Unknown]

NARRATIVE: CASE EVENT DATE: 20210106
